FAERS Safety Report 8411458 (Version 2)
Quarter: 2013Q2

REPORT INFORMATION
  Report Type: Spontaneous
  Country: US (occurrence: None)
  Receive Date: 20111227
  Receipt Date: 20121031
  Transmission Date: 20140414
  Serious: Yes (Other)
  Sender: FDA-Public Use
  Company Number: PHEH2011US08235

PATIENT
  Sex: 0

DRUGS (1)
  1. GILENYA [Suspect]
     Dosage: ORAL
     Route: 048

REACTIONS (2)
  - NAUSEA [None]
  - Multiple sclerosis [None]
